FAERS Safety Report 23526549 (Version 1)
Quarter: 2024Q1

REPORT INFORMATION
  Report Type: Spontaneous
  Country: US (occurrence: None)
  Receive Date: 20240214
  Receipt Date: 20240214
  Transmission Date: 20240409
  Serious: Yes (Other)
  Sender: FDA-Public Use
  Company Number: None

PATIENT
  Sex: Male

DRUGS (1)
  1. DEFERASIROX [Suspect]
     Active Substance: DEFERASIROX
     Indication: Aplastic anaemia
     Dosage: FREQUENCY : DAILY;?
     Route: 048
     Dates: start: 202311

REACTIONS (2)
  - Renal disorder [None]
  - Blood creatinine increased [None]
